FAERS Safety Report 21189736 (Version 1)
Quarter: 2022Q3

REPORT INFORMATION
  Report Type: Spontaneous
  Country: US (occurrence: US)
  Receive Date: 20220809
  Receipt Date: 20220809
  Transmission Date: 20221027
  Serious: Yes (Life-Threatening, Hospitalization, Disabling, Other)
  Sender: FDA-Public Use
  Company Number: US-BRISTOL-MYERS SQUIBB COMPANY-2022-083135

PATIENT
  Age: 82 Year
  Sex: Male
  Weight: 102.51 kg

DRUGS (3)
  1. REVLIMID [Suspect]
     Active Substance: LENALIDOMIDE
     Indication: Plasma cell myeloma
     Route: 065
     Dates: start: 2018
  2. REVLIMID [Suspect]
     Active Substance: LENALIDOMIDE
     Dosage: QD D1-21 Q 28 DAYS
     Route: 048
     Dates: start: 20220614
  3. ELIQUIS [Concomitant]
     Active Substance: APIXABAN
     Route: 048
     Dates: start: 2018

REACTIONS (3)
  - Cerebral infarction [Recovered/Resolved with Sequelae]
  - Aphasia [Unknown]
  - Hemiplegia [Unknown]

NARRATIVE: CASE EVENT DATE: 20220619
